FAERS Safety Report 9284874 (Version 1)
Quarter: 2013Q2

REPORT INFORMATION
  Report Type: Report from Study
  Country: DE (occurrence: DE)
  Receive Date: 20130513
  Receipt Date: 20130513
  Transmission Date: 20140414
  Serious: Yes (Death)
  Sender: FDA-Public Use
  Company Number: DE-ROCHE-1222815

PATIENT
  Sex: 0

DRUGS (3)
  1. ALTEPLASE [Suspect]
     Indication: ISCHAEMIC STROKE
     Dosage: 20 MG - 50 MG
     Route: 040
  2. TIROFIBAN [Suspect]
     Indication: ISCHAEMIC STROKE
     Dosage: (GIVEN IN A BODY WEIGHT-ADJUSTED DOSAGE STARTING WIT A BOLUS OF 400 MCG/KG/MIN FOR 30 MINUTES FOLLOW
     Route: 040
  3. HEPARIN [Suspect]
     Indication: ISCHAEMIC STROKE
     Dosage: 1000 U
     Route: 065

REACTIONS (2)
  - Drug ineffective [Fatal]
  - Cerebral infarction [Fatal]
